FAERS Safety Report 23450399 (Version 1)
Quarter: 2024Q1

REPORT INFORMATION
  Report Type: Spontaneous
  Country: CA (occurrence: CA)
  Receive Date: 20240129
  Receipt Date: 20240129
  Transmission Date: 20240409
  Serious: Yes (Other)
  Sender: FDA-Public Use
  Company Number: None

PATIENT
  Sex: Male

DRUGS (2)
  1. EZETIMIBE [Suspect]
     Active Substance: EZETIMIBE
     Indication: Arteriosclerosis
     Route: 065
  2. PRAVASTATIN SODIUM [Suspect]
     Active Substance: PRAVASTATIN SODIUM
     Indication: Arteriosclerosis
     Route: 065

REACTIONS (3)
  - Hyperlipidaemia [Unknown]
  - Hypertension [Unknown]
  - Myocardial infarction [Unknown]
